FAERS Safety Report 15139718 (Version 1)
Quarter: 2018Q3

REPORT INFORMATION
  Report Type: Spontaneous
  Country: FR (occurrence: FR)
  Receive Date: 20180713
  Receipt Date: 20180713
  Transmission Date: 20181010
  Serious: Yes (Hospitalization, Other)
  Sender: FDA-Public Use
  Company Number: FR-ROCHE-61764

PATIENT

DRUGS (4)
  1. AMIKLIN [Concomitant]
     Active Substance: AMIKACIN SULFATE
  2. BACTRIM [Suspect]
     Active Substance: SULFAMETHOXAZOLE\TRIMETHOPRIM
     Indication: INFLUENZA
     Route: 064
     Dates: start: 19951212, end: 19951217
  3. CLAMOXYL (AMOXICILLIN) [Concomitant]
     Active Substance: AMOXICILLIN
  4. SALBUMOL [Concomitant]
     Active Substance: ALBUTEROL SULFATE
     Indication: URINARY TRACT INFECTION
     Route: 064

REACTIONS (9)
  - Neutropenia neonatal [Recovered/Resolved]
  - Weight decrease neonatal [Unknown]
  - Purpura neonatal [Recovering/Resolving]
  - Contraindicated product administered [Unknown]
  - Agitation neonatal [Unknown]
  - Jaundice neonatal [Unknown]
  - Rectal haemorrhage [Recovered/Resolved]
  - Leukopenia neonatal [Recovered/Resolved]
  - Haematuria [Recovered/Resolved]

NARRATIVE: CASE EVENT DATE: 19951221
